FAERS Safety Report 21254578 (Version 1)
Quarter: 2022Q3

REPORT INFORMATION
  Report Type: Report from Study
  Country: BR (occurrence: BR)
  Receive Date: 20220825
  Receipt Date: 20220825
  Transmission Date: 20221026
  Serious: Yes (Other)
  Sender: FDA-Public Use
  Company Number: BR-ABBOTT-2022A-1352173

PATIENT
  Sex: Male
  Weight: 22 kg

DRUGS (1)
  1. DEPAKOTE [Suspect]
     Active Substance: DIVALPROEX SODIUM
     Indication: Seizure
     Dosage: START DATE MORE THAN 3 YEARS AGO.3 CAPSULES IN MORNING, 3 IN THE EVENING;6 CAPSULES:750MG
     Route: 065

REACTIONS (2)
  - Product use issue [Unknown]
  - Seizure [Unknown]
